FAERS Safety Report 7825336-3 (Version None)
Quarter: 2011Q4

REPORT INFORMATION
  Report Type: 
  Country: None (occurrence: None)
  Receive Date: 20111019
  Receipt Date: 20111011
  Transmission Date: 20120403
  Serious: Yes (Other)
  Sender: FDA-Public Use
  Company Number: PHHY2011SA89934

PATIENT
  Sex: Female

DRUGS (3)
  1. SOTALOL HCL [Suspect]
     Indication: TACHYCARDIA FOETAL
     Dosage: 80 MG, BID
     Route: 048
  2. VERAPAMIL [Concomitant]
  3. ADENOSINE [Concomitant]

REACTIONS (6)
  - FATIGUE [None]
  - NORMAL NEWBORN [None]
  - MATERNAL EXPOSURE DURING PREGNANCY [None]
  - DIZZINESS [None]
  - WITHDRAWAL SYNDROME [None]
  - SUPRAVENTRICULAR TACHYCARDIA [None]
